FAERS Safety Report 20696349 (Version 5)
Quarter: 2022Q2

REPORT INFORMATION
  Report Type: Report from Study
  Country: NL (occurrence: None)
  Receive Date: 20220411
  Receipt Date: 20220502
  Transmission Date: 20220721
  Serious: Yes (Hospitalization)
  Sender: FDA-Public Use
  Company Number: NL-Eisai Medical Research-EC-2022-112669

PATIENT
  Age: 56 Year
  Sex: Male
  Weight: 68.5 kg

DRUGS (12)
  1. LENVATINIB [Suspect]
     Active Substance: LENVATINIB
     Indication: Neoplasm
     Dosage: STARTING DOSE AT 20 MG, QD (FLUCTUATED DOSAGE)
     Route: 048
     Dates: start: 20220204, end: 20220328
  2. LENVATINIB [Suspect]
     Active Substance: LENVATINIB
     Route: 048
     Dates: start: 20220330, end: 20220403
  3. PEMBROLIZUMAB [Suspect]
     Active Substance: PEMBROLIZUMAB
     Indication: Neoplasm
     Route: 041
     Dates: start: 20220204, end: 20220204
  4. PEMBROLIZUMAB [Suspect]
     Active Substance: PEMBROLIZUMAB
     Route: 041
     Dates: start: 20220318, end: 20220318
  5. BELZUTIFAN [Suspect]
     Active Substance: BELZUTIFAN
     Indication: Neoplasm
     Route: 048
     Dates: start: 20220204, end: 20220317
  6. BELZUTIFAN [Suspect]
     Active Substance: BELZUTIFAN
     Route: 048
     Dates: start: 20220318, end: 20220403
  7. ACETAMINOPHEN [Concomitant]
     Active Substance: ACETAMINOPHEN
     Dates: start: 20220121
  8. ABSTRAL [Concomitant]
     Active Substance: FENTANYL CITRATE
     Dates: start: 20220124
  9. METOCLOPRAMIDE [Concomitant]
     Active Substance: METOCLOPRAMIDE
     Dates: start: 20220204, end: 20220407
  10. FENTANYL [Concomitant]
     Active Substance: FENTANYL
     Dates: start: 20220222, end: 20220408
  11. POLYETHYLENE GLYCOL COMPOUND [Concomitant]
     Dates: start: 20220224
  12. LACTULOSE [Concomitant]
     Active Substance: LACTULOSE
     Dates: start: 20220401

REACTIONS (2)
  - Hepatic enzyme increased [Not Recovered/Not Resolved]
  - Malignant neoplasm progression [Not Recovered/Not Resolved]

NARRATIVE: CASE EVENT DATE: 20220403
